FAERS Safety Report 16331260 (Version 1)
Quarter: 2019Q2

REPORT INFORMATION
  Report Type: Spontaneous
  Country: FR (occurrence: FR)
  Receive Date: 20190520
  Receipt Date: 20190520
  Transmission Date: 20190711
  Serious: Yes (Disabling)
  Sender: FDA-Public Use
  Company Number: FR-JNJFOC-20190521128

PATIENT
  Age: 34 Year
  Sex: Female

DRUGS (1)
  1. ALMOGRAN [Suspect]
     Active Substance: ALMOTRIPTAN MALATE
     Indication: MIGRAINE
     Route: 048

REACTIONS (1)
  - VIth nerve paresis [Recovering/Resolving]

NARRATIVE: CASE EVENT DATE: 201901
